FAERS Safety Report 23871361 (Version 2)
Quarter: 2024Q4

REPORT INFORMATION
  Report Type: Spontaneous
  Country: BE (occurrence: BE)
  Receive Date: 20240519
  Receipt Date: 20241030
  Transmission Date: 20250114
  Serious: Yes (Other)
  Sender: AUROBINDO
  Company Number: BE-JNJFOC-20240481901

PATIENT
  Sex: Male

DRUGS (27)
  1. TADALAFIL [Suspect]
     Active Substance: TADALAFIL
     Indication: Pulmonary arterial hypertension
     Dosage: DAILY DOSE 40
     Route: 048
     Dates: start: 20211026, end: 20221018
  2. ADEMPAS [Suspect]
     Active Substance: RIOCIGUAT
     Indication: Pulmonary arterial hypertension
     Dosage: 3
     Route: 048
     Dates: start: 20221020, end: 20221102
  3. ADEMPAS [Suspect]
     Active Substance: RIOCIGUAT
     Dosage: 4.5
     Route: 048
     Dates: start: 20221102, end: 20221116
  4. ADEMPAS [Suspect]
     Active Substance: RIOCIGUAT
     Dosage: 6
     Route: 048
     Dates: start: 20221116, end: 20221129
  5. ADEMPAS [Suspect]
     Active Substance: RIOCIGUAT
     Dosage: 7.5
     Route: 048
     Dates: start: 20221129, end: 20221209
  6. ADEMPAS [Suspect]
     Active Substance: RIOCIGUAT
     Dosage: 6
     Route: 048
     Dates: start: 20221209, end: 20230109
  7. ADEMPAS [Suspect]
     Active Substance: RIOCIGUAT
     Dosage: 7.5
     Route: 048
     Dates: start: 20230109, end: 20230113
  8. ADEMPAS [Suspect]
     Active Substance: RIOCIGUAT
     Dosage: 6
     Route: 048
     Dates: start: 20230113
  9. EPOPROSTENOL SODIUM [Suspect]
     Active Substance: EPOPROSTENOL SODIUM
     Indication: Pulmonary arterial hypertension
     Dosage: UNK
     Route: 042
     Dates: start: 20211105, end: 20211108
  10. EPOPROSTENOL SODIUM [Suspect]
     Active Substance: EPOPROSTENOL SODIUM
     Dosage: UNK
     Route: 042
     Dates: start: 20211108, end: 20211112
  11. EPOPROSTENOL SODIUM [Suspect]
     Active Substance: EPOPROSTENOL SODIUM
     Dosage: UNK
     Route: 042
     Dates: start: 20211112, end: 20211115
  12. EPOPROSTENOL SODIUM [Suspect]
     Active Substance: EPOPROSTENOL SODIUM
     Dosage: UNK
     Route: 042
     Dates: start: 20211115, end: 20211116
  13. EPOPROSTENOL SODIUM [Suspect]
     Active Substance: EPOPROSTENOL SODIUM
     Dosage: UNK
     Route: 042
     Dates: start: 20211116, end: 20211123
  14. EPOPROSTENOL SODIUM [Suspect]
     Active Substance: EPOPROSTENOL SODIUM
     Dosage: UNK
     Route: 042
     Dates: start: 20211123, end: 20211130
  15. EPOPROSTENOL SODIUM [Suspect]
     Active Substance: EPOPROSTENOL SODIUM
     Dosage: UNK
     Route: 042
     Dates: start: 20211130, end: 20211228
  16. EPOPROSTENOL SODIUM [Suspect]
     Active Substance: EPOPROSTENOL SODIUM
     Dosage: UNK
     Route: 042
     Dates: start: 20220105, end: 20220117
  17. EPOPROSTENOL SODIUM [Suspect]
     Active Substance: EPOPROSTENOL SODIUM
     Dosage: UNK
     Route: 042
     Dates: start: 20220204, end: 20220810
  18. EPOPROSTENOL SODIUM [Suspect]
     Active Substance: EPOPROSTENOL SODIUM
     Dosage: UNK
     Route: 042
     Dates: start: 20220810, end: 20220816
  19. EPOPROSTENOL SODIUM [Suspect]
     Active Substance: EPOPROSTENOL SODIUM
     Dosage: UNK
     Route: 042
     Dates: start: 20220816, end: 20220823
  20. EPOPROSTENOL SODIUM [Suspect]
     Active Substance: EPOPROSTENOL SODIUM
     Dosage: UNK
     Route: 042
     Dates: start: 20220830, end: 20220906
  21. EPOPROSTENOL SODIUM [Suspect]
     Active Substance: EPOPROSTENOL SODIUM
     Dosage: UNK
     Route: 042
     Dates: start: 20220906, end: 20220913
  22. EPOPROSTENOL SODIUM [Suspect]
     Active Substance: EPOPROSTENOL SODIUM
     Dosage: UNK
     Route: 042
     Dates: start: 20220823, end: 20220830
  23. EPOPROSTENOL SODIUM [Suspect]
     Active Substance: EPOPROSTENOL SODIUM
     Dosage: UNK
     Route: 042
     Dates: start: 20211228, end: 20220105
  24. EPOPROSTENOL SODIUM [Suspect]
     Active Substance: EPOPROSTENOL SODIUM
     Dosage: UNK
     Route: 042
     Dates: start: 20220118, end: 20220204
  25. EPOPROSTENOL SODIUM [Suspect]
     Active Substance: EPOPROSTENOL SODIUM
     Dosage: UNK
     Route: 042
     Dates: start: 20220913, end: 20220919
  26. EPOPROSTENOL SODIUM [Suspect]
     Active Substance: EPOPROSTENOL SODIUM
     Dosage: UNK
     Route: 042
     Dates: start: 20220919
  27. MACITENTAN [Suspect]
     Active Substance: MACITENTAN
     Indication: Pulmonary arterial hypertension
     Dosage: 10
     Route: 048
     Dates: start: 20211108

REACTIONS (2)
  - Pulmonary arterial hypertension [Unknown]
  - Pain in jaw [Recovered/Resolved]

NARRATIVE: CASE EVENT DATE: 20211123
